FAERS Safety Report 22344230 (Version 2)
Quarter: 2023Q2

REPORT INFORMATION
  Report Type: Spontaneous
  Country: US (occurrence: US)
  Receive Date: 20230519
  Receipt Date: 20230601
  Transmission Date: 20230722
  Serious: Yes (Hospitalization, Other)
  Sender: FDA-Public Use
  Company Number: US-BRISTOL-MYERS SQUIBB COMPANY-2023-069996

PATIENT
  Age: 85 Year
  Sex: Female
  Weight: 59.87 kg

DRUGS (1)
  1. ELIQUIS [Suspect]
     Active Substance: APIXABAN
     Indication: Thrombosis prophylaxis
     Route: 048

REACTIONS (8)
  - Hypoaesthesia [Unknown]
  - Kidney enlargement [Unknown]
  - Pulmonary arterial hypertension [Unknown]
  - Skin discolouration [Unknown]
  - Decreased appetite [Unknown]
  - Weight decreased [Unknown]
  - Scoliosis [Unknown]
  - White blood cell count decreased [Unknown]

NARRATIVE: CASE EVENT DATE: 20230101
